FAERS Safety Report 7967831-2 (Version None)
Quarter: 2011Q4

REPORT INFORMATION
  Report Type: 
  Country: None (occurrence: None)
  Receive Date: 20111207
  Receipt Date: 20111122
  Transmission Date: 20120403
  Serious: Yes (Hospitalization, Other)
  Sender: FDA-Public Use
  Company Number: JPI-P-017340

PATIENT
  Age: 60 Year
  Sex: Male

DRUGS (14)
  1. XYREM [Suspect]
     Indication: NARCOLEPSY
     Dosage: 4.5 GM (2.25 GM, 2 IN 1 D), ORAL; 9 GM (4.5 GM, 2 IN 1 D), ORAL
     Route: 048
     Dates: start: 20110922
  2. XYREM [Suspect]
     Indication: NARCOLEPSY
     Dosage: 4.5 GM (2.25 GM, 2 IN 1 D), ORAL; 9 GM (4.5 GM, 2 IN 1 D), ORAL
     Route: 048
     Dates: start: 20070604
  3. XYREM [Suspect]
     Indication: NARCOLEPSY
     Dosage: 4.5 GM (2.25 GM, 2 IN 1 D), ORAL; 9 GM (4.5 GM, 2 IN 1 D), ORAL
     Route: 048
     Dates: start: 20080324, end: 20110911
  4. PREDNISONE [Concomitant]
  5. LISINOPRIL [Concomitant]
  6. CLOPIDOGREL BISULFATE [Concomitant]
  7. METHYLPHENIDATE HCL [Concomitant]
  8. CYCLOBENZAPRINE HCL [Concomitant]
  9. PENTAZOCINE LACTATE [Concomitant]
  10. ACETAMINOPHEN AND HYDROCODONE (UNKNOWN) [Suspect]
     Indication: PAIN
  11. ACETAMINOPHEN AND HYDROCODONE (UNKNOWN) [Suspect]
     Indication: NEUROPATHY PERIPHERAL
  12. DIAZEPAM [Suspect]
     Indication: INSOMNIA
  13. ATORVASTATIN CALCIUM [Concomitant]
  14. GABAPENTIN [Concomitant]

REACTIONS (17)
  - WHITE BLOOD CELL COUNT INCREASED [None]
  - PAIN [None]
  - HYPOPNOEA [None]
  - TREMOR [None]
  - HEAVY EXPOSURE TO ULTRAVIOLET LIGHT [None]
  - WOUND INFECTION [None]
  - TRANSIENT ISCHAEMIC ATTACK [None]
  - LYMPHADENOPATHY [None]
  - WOUND [None]
  - DRUG WITHDRAWAL SYNDROME [None]
  - DEHYDRATION [None]
  - BLOOD PRESSURE DECREASED [None]
  - CELLULITIS [None]
  - PRESYNCOPE [None]
  - CONFUSIONAL STATE [None]
  - MEMORY IMPAIRMENT [None]
  - AGGRESSION [None]
